FAERS Safety Report 4325558-2 (Version None)
Quarter: 2004Q1

REPORT INFORMATION
  Report Type: 
  Country: None (occurrence: None)
  Receive Date: 20040324
  Receipt Date: 20040310
  Transmission Date: 20041129
  Serious: Yes (Hospitalization, Other)
  Sender: FDA-Public Use
  Company Number: USA030845636

PATIENT
  Age: 75 Year
  Sex: Female
  Weight: 43 kg

DRUGS (6)
  1. FORTEO [Suspect]
     Indication: OSTEOPOROSIS
     Dates: start: 20030701
  2. FORTEO [Suspect]
  3. DYAZIDE [Concomitant]
  4. UNIVASC [Concomitant]
  5. PREDNISONE [Concomitant]
  6. COSOPT [Concomitant]

REACTIONS (4)
  - DIARRHOEA [None]
  - DIVERTICULITIS [None]
  - INJECTION SITE HAEMORRHAGE [None]
  - PHARMACEUTICAL PRODUCT COMPLAINT [None]
